FAERS Safety Report 13214605 (Version 1)
Quarter: 2017Q1

REPORT INFORMATION
  Report Type: Report from Study
  Country: IT (occurrence: IT)
  Receive Date: 20170210
  Receipt Date: 20170210
  Transmission Date: 20170428
  Serious: Yes (Hospitalization)
  Sender: FDA-Public Use
  Company Number: IT-MYLANLABS-2017M1007905

PATIENT

DRUGS (4)
  1. BEVACIZUMAB [Suspect]
     Active Substance: BEVACIZUMAB
     Indication: GASTROINTESTINAL CARCINOMA
     Dosage: UNK
     Dates: start: 20160226
  2. FLUOROURACIL. [Suspect]
     Active Substance: FLUOROURACIL
     Indication: GASTROINTESTINAL CARCINOMA
     Dosage: UNK
     Dates: start: 20160226
  3. IRINOTECAN [Suspect]
     Active Substance: IRINOTECAN
     Indication: GASTROINTESTINAL CARCINOMA
     Dosage: UNK
     Dates: start: 20160226
  4. OXALIPLATIN. [Suspect]
     Active Substance: OXALIPLATIN
     Indication: GASTROINTESTINAL CARCINOMA
     Dosage: UNK
     Dates: start: 20160226

REACTIONS (3)
  - Decreased appetite [Recovering/Resolving]
  - Toxicity to various agents [Recovering/Resolving]
  - Diarrhoea [Recovering/Resolving]

NARRATIVE: CASE EVENT DATE: 20160304
